FAERS Safety Report 6087715-7 (Version None)
Quarter: 2009Q1

REPORT INFORMATION
  Report Type: 
  Country: None (occurrence: None)
  Receive Date: 20090223
  Receipt Date: 20090209
  Transmission Date: 20090719
  Serious: Yes (Hospitalization)
  Sender: FDA-Public Use
  Company Number: GB-ROCHE-613584

PATIENT
  Age: 53 Year
  Sex: Female

DRUGS (8)
  1. MYCOPHENOLATE MOFETIL [Suspect]
     Indication: RENAL TRANSPLANT
     Route: 065
  2. CORTICOSTEROIDS [Suspect]
     Indication: RENAL TRANSPLANT
     Route: 048
  3. CORTICOSTEROIDS [Suspect]
     Dosage: DOSE REDUCED.
     Route: 048
  4. METHYLPREDNISOLONE 4MG TAB [Suspect]
     Indication: RENAL TRANSPLANT
     Route: 042
  5. PROGRAF [Suspect]
     Indication: RENAL TRANSPLANT
     Route: 065
  6. PROGRAF [Suspect]
     Dosage: DOSE REDUCED.
     Route: 065
  7. CO-TRIMOXAZOLE [Concomitant]
  8. FLUCONAZOLE [Concomitant]
     Indication: ANTIFUNGAL PROPHYLAXIS

REACTIONS (1)
  - POLYOMAVIRUS-ASSOCIATED NEPHROPATHY [None]
